FAERS Safety Report 9131811 (Version 1)
Quarter: 2013Q1

REPORT INFORMATION
  Report Type: Spontaneous
  Country: US (occurrence: US)
  Receive Date: 20130301
  Receipt Date: 20130301
  Transmission Date: 20140127
  Serious: Yes (Other)
  Sender: FDA-Public Use
  Company Number: US-MYLANLABS-2012S1015401

PATIENT
  Sex: Male

DRUGS (6)
  1. AMNESTEEM [Suspect]
     Route: 048
     Dates: start: 200202, end: 200211
  2. AMNESTEEM [Suspect]
     Route: 048
     Dates: start: 200908, end: 200909
  3. ACCUTANE [Suspect]
     Route: 048
     Dates: start: 200202, end: 200211
  4. ACCUTANE [Suspect]
     Route: 048
     Dates: start: 200908, end: 200909
  5. ISOTRETINOIN [Suspect]
     Route: 048
     Dates: start: 200202, end: 200211
  6. ISOTRETINOIN [Suspect]
     Route: 048
     Dates: start: 200908, end: 200909

REACTIONS (1)
  - Colitis ulcerative [Not Recovered/Not Resolved]
